FAERS Safety Report 14222650 (Version 1)
Quarter: 2017Q4

REPORT INFORMATION
  Report Type: Spontaneous
  Country: US (occurrence: US)
  Receive Date: 20171124
  Receipt Date: 20171124
  Transmission Date: 20180321
  Serious: No
  Sender: FDA-Public Use
  Company Number: US-JNJFOC-20170928647

PATIENT
  Age: 54 Year
  Sex: Female
  Weight: 77.11 kg

DRUGS (3)
  1. IMODIUM MULTI-SYMPTOM RELIEF [Suspect]
     Active Substance: DIMETHICONE\LOPERAMIDE HYDROCHLORIDE
     Route: 048
  2. IMODIUM MULTI-SYMPTOM RELIEF [Suspect]
     Active Substance: DIMETHICONE\LOPERAMIDE HYDROCHLORIDE
     Indication: COLITIS
     Route: 048
     Dates: start: 201704
  3. MESALAMINE. [Concomitant]
     Active Substance: MESALAMINE
     Indication: COLITIS
     Route: 065

REACTIONS (1)
  - Product packaging issue [Unknown]
